FAERS Safety Report 16635855 (Version 4)
Quarter: 2019Q3

REPORT INFORMATION
  Report Type: Report from Study
  Country: CO (occurrence: CO)
  Receive Date: 20190726
  Receipt Date: 20190920
  Transmission Date: 20191004
  Serious: Yes (Hospitalization, Other)
  Sender: FDA-Public Use
  Company Number: CO-ASTELLAS-2019US009638

PATIENT
  Age: 66 Year
  Sex: Male
  Weight: 64 kg

DRUGS (8)
  1. FOLIC ACID. [Concomitant]
     Active Substance: FOLIC ACID
     Indication: PRODUCT USED FOR UNKNOWN INDICATION
     Route: 048
  2. TACROLIMUS. [Suspect]
     Active Substance: TACROLIMUS
     Indication: BLOOD CREATININE INCREASED
     Route: 048
     Dates: start: 20190629
  3. PRAZOSIN. [Suspect]
     Active Substance: PRAZOSIN
     Indication: HYPERTENSION
     Route: 048
     Dates: start: 20190123, end: 20190613
  4. TRIMETHOPRIM SULFA [Concomitant]
     Active Substance: TRIMETHOPRIM SULFATE
     Indication: PRODUCT USED FOR UNKNOWN INDICATION
     Route: 048
  5. TACROLIMUS. [Suspect]
     Active Substance: TACROLIMUS
     Indication: RENAL TRANSPLANT
     Dosage: 2.5 MG, ONCE DAILY (2 CAPSULES OF 1 MG AND 1 CAPSULE OF 0.5 MG)
     Route: 048
     Dates: start: 20190123, end: 20190628
  6. CLONIDINE. [Suspect]
     Active Substance: CLONIDINE
     Indication: HYPERTENSION
     Route: 048
     Dates: start: 20190123, end: 20190613
  7. MYCOPHENOLATE [Concomitant]
     Active Substance: MYCOPHENOLIC ACID
     Indication: RENAL TRANSPLANT
     Route: 048
     Dates: start: 20190123
  8. VALGANCICLOVIR. [Concomitant]
     Active Substance: VALGANCICLOVIR
     Indication: PRODUCT USED FOR UNKNOWN INDICATION
     Route: 048

REACTIONS (13)
  - Cellulitis [Recovering/Resolving]
  - Hepatic cirrhosis [Not Recovered/Not Resolved]
  - Platelet count decreased [Unknown]
  - Pain in extremity [Not Recovered/Not Resolved]
  - Blood creatinine increased [Recovered/Resolved]
  - Swelling [Recovering/Resolving]
  - Coronary artery occlusion [Recovered/Resolved]
  - Dizziness [Recovered/Resolved]
  - Fatigue [Not Recovered/Not Resolved]
  - Fatigue [Recovering/Resolving]
  - Chest pain [Recovering/Resolving]
  - Cardio-respiratory arrest [Recovered/Resolved]
  - Cardiac failure [Recovering/Resolving]

NARRATIVE: CASE EVENT DATE: 20190130
